FAERS Safety Report 7413339-2 (Version None)
Quarter: 2011Q2

REPORT INFORMATION
  Report Type: 
  Country: None (occurrence: None)
  Receive Date: 20110413
  Receipt Date: 20101108
  Transmission Date: 20111010
  Serious: Yes (Hospitalization)
  Sender: FDA-Public Use
  Company Number: US-ASTRAZENECA-2010SE53002

PATIENT
  Age: 71 Year
  Sex: Male
  Weight: 80.3 kg

DRUGS (14)
  1. METHOTREXATE [Concomitant]
     Route: 065
     Dates: start: 20040726
  2. PREDNISONE [Concomitant]
     Route: 065
     Dates: start: 20070911
  3. ATENOLOL [Suspect]
     Indication: HYPERTENSION
     Route: 048
     Dates: start: 20080419
  4. CELECOXIB;IBUPROFEN/NAPROXEN;PLACEBO(CODE NOT BROKEN) [Suspect]
     Indication: OSTEOARTHRITIS
     Route: 048
     Dates: start: 20080104
  5. CELECOXIB;IBUPROFEN/NAPROXEN;PLACEBO(CODE NOT BROKEN) [Suspect]
     Route: 048
     Dates: start: 20080104
  6. CELECOXIB;IBUPROFEN/NAPROXEN;PLACEBO(CODE NOT BROKEN) [Suspect]
     Route: 048
     Dates: start: 20080104
  7. FOLIC ACID [Concomitant]
     Route: 065
     Dates: start: 20040724
  8. PARACETAMOL [Concomitant]
     Route: 065
     Dates: start: 20000101
  9. CELECOXIB;IBUPROFEN/NAPROXEN;PLACEBO(CODE NOT BROKEN) [Suspect]
     Indication: RHEUMATOID ARTHRITIS
     Route: 048
     Dates: start: 20080104
  10. CELECOXIB;IBUPROFEN/NAPROXEN;PLACEBO(CODE NOT BROKEN) [Suspect]
     Route: 048
     Dates: start: 20080104
  11. NEXIUM [Concomitant]
     Route: 048
     Dates: start: 20080104
  12. RISEDRONATE [Concomitant]
     Route: 065
     Dates: start: 20050509
  13. CELECOXIB;IBUPROFEN/NAPROXEN;PLACEBO(CODE NOT BROKEN) [Suspect]
     Route: 048
     Dates: start: 20080104
  14. CITRUCEL [Concomitant]
     Route: 066
     Dates: start: 20050301

REACTIONS (2)
  - BRADYCARDIA [None]
  - DIZZINESS [None]
